FAERS Safety Report 6673632-8 (Version None)
Quarter: 2010Q1

REPORT INFORMATION
  Report Type: 
  Country: None (occurrence: None)
  Receive Date: 20100329
  Receipt Date: 20090926
  Transmission Date: 20100710
  Serious: Yes (Other)
  Sender: FDA-Public Use
  Company Number: 2009227194

PATIENT
  Age: 16 Year
  Sex: Female
  Weight: 72.6 kg

DRUGS (2)
  1. GEODON [Suspect]
     Dosage: 40 MG/AM, 80 MG/PM, ORAL
     Route: 048
  2. RISPERDAL [Concomitant]

REACTIONS (1)
  - PSYCHOTIC DISORDER [None]
